FAERS Safety Report 15497503 (Version 1)
Quarter: 2018Q4

REPORT INFORMATION
  Report Type: Spontaneous
  Country: US (occurrence: US)
  Receive Date: 20181005
  Receipt Date: 20181005
  Transmission Date: 20190205
  Serious: Yes (Hospitalization)
  Sender: FDA-Public Use
  Company Number: None

PATIENT
  Age: 47 Year
  Sex: Female

DRUGS (10)
  1. BACLOFEN. [Concomitant]
     Active Substance: BACLOFEN
  2. MIRAPEX [Concomitant]
     Active Substance: PRAMIPEXOLE DIHYDROCHLORIDE
  3. CYMBALTA [Concomitant]
     Active Substance: DULOXETINE HYDROCHLORIDE
  4. SYNTHROID [Concomitant]
     Active Substance: LEVOTHYROXINE SODIUM
  5. GLATIRAMER PFS 40MG PFS [Suspect]
     Active Substance: GLATIRAMER ACETATE
     Indication: MULTIPLE SCLEROSIS
     Route: 058
     Dates: start: 20180427
  6. D3-50 [Concomitant]
  7. CARBAMAZEPIN [Concomitant]
     Active Substance: CARBAMAZEPINE
  8. GABAPENTIN. [Concomitant]
     Active Substance: GABAPENTIN
  9. NORTRIPTYLIN [Concomitant]
     Active Substance: NORTRIPTYLINE
  10. IRON [Concomitant]
     Active Substance: IRON

REACTIONS (2)
  - Product dose omission [None]
  - Multiple sclerosis relapse [None]

NARRATIVE: CASE EVENT DATE: 20180829
